FAERS Safety Report 4752433-1 (Version None)
Quarter: 2005Q3

REPORT INFORMATION
  Report Type: 
  Country: None (occurrence: None)
  Receive Date: 20050823
  Receipt Date: 20050713
  Transmission Date: 20060218
  Serious: Yes (Hospitalization)
  Sender: FDA-Public Use
  Company Number: WAES 0508USA01163

PATIENT
  Sex: Female

DRUGS (4)
  1. COZAAR [Suspect]
     Indication: HYPERTENSION
     Dosage: 50 MG DAILY PO
     Route: 048
     Dates: start: 20020316, end: 20041027
  2. BLOPRESS [Concomitant]
  3. CONIEL [Concomitant]
  4. VASTOEC [Concomitant]

REACTIONS (1)
  - ADVERSE EVENT [None]
